FAERS Safety Report 10075362 (Version 2)
Quarter: 2014Q2

REPORT INFORMATION
  Report Type: Spontaneous
  Country: US (occurrence: US)
  Receive Date: 20140414
  Receipt Date: 20140414
  Transmission Date: 20141212
  Serious: Yes (Other)
  Sender: FDA-Public Use
  Company Number: US-AMGEN-USASP2014017708

PATIENT
  Age: 52 Year
  Sex: Female
  Weight: 62.13 kg

DRUGS (24)
  1. ENBREL [Suspect]
     Indication: PRODUCT USED FOR UNKNOWN INDICATION
     Dosage: 50 MG, QWK
     Route: 058
  2. SOMA [Concomitant]
     Dosage: 250 MG, UNK
  3. PREMARIN [Concomitant]
     Dosage: 0.3 MG, UNK
     Route: 048
  4. PREDNISONE [Concomitant]
     Dosage: 10 MG, UNK
     Route: 048
  5. METHOTREXATE [Concomitant]
     Dosage: 2.5 MG, UNK
     Route: 048
  6. NEURONTIN [Concomitant]
     Dosage: 300 MG, UNK
  7. TRAZODONE [Concomitant]
     Dosage: 50 MG, UNK
  8. FENTANYL [Concomitant]
     Dosage: 100(MUG) MCG/H, UNK
  9. SIMVASTATIN [Concomitant]
     Dosage: 20 MG, UNK
  10. OXYBUTYNIN [Concomitant]
     Dosage: 5 MG, UNK
  11. PRILOSEC                           /00661201/ [Concomitant]
     Dosage: 20 MG, UNK
     Route: 048
  12. VITAMIN D3 [Concomitant]
     Dosage: 1000 UNIT, UNK
     Route: 048
  13. CLARITIN                           /00917501/ [Concomitant]
     Dosage: 10 MG, UNK
     Route: 048
  14. VITAMIN B [Concomitant]
     Dosage: UNK
     Route: 048
  15. CALCIUM [Concomitant]
     Dosage: 500 UNK, UNK
     Route: 048
  16. VITAMIN C                          /00008001/ [Concomitant]
     Dosage: 500 MG, UNK
     Route: 048
  17. FOLIC ACID [Concomitant]
     Dosage: UNK
     Route: 048
  18. FLAX SEED OIL [Concomitant]
     Dosage: UNK
  19. BLACK COHOSH                       /01456801/ [Concomitant]
     Dosage: 200 MG, UNK
  20. BABY ASPIRIN [Concomitant]
     Dosage: 81 MG, UNK
     Route: 048
  21. CIPRO                              /00697201/ [Concomitant]
     Dosage: 500 MG, UNK
  22. HYDROCODONE W/APAP                 /00607101/ [Concomitant]
     Dosage: 2.5-325, UNK
  23. BACLOFEN [Concomitant]
     Dosage: 10 MG, UNK
  24. PRAMIPEXOLE [Concomitant]
     Dosage: 0.25 MG, UNK

REACTIONS (9)
  - Monoplegia [Recovering/Resolving]
  - Depression [Unknown]
  - Peroneal nerve palsy [Recovering/Resolving]
  - Post procedural infection [Unknown]
  - Sinusitis [Unknown]
  - Seasonal allergy [Unknown]
  - Eye swelling [Unknown]
  - Ingrowing nail [Unknown]
  - Rhinorrhoea [Unknown]
